FAERS Safety Report 5473983-9 (Version None)
Quarter: 2007Q3

REPORT INFORMATION
  Report Type: 
  Country: None (occurrence: None)
  Receive Date: 20070830
  Receipt Date: 20070622
  Transmission Date: 20080115
  Serious: Yes (Other)
  Sender: FDA-Public Use
  Company Number: PHEH2007US09209

PATIENT
  Age: 61 Year
  Sex: Male

DRUGS (1)
  1. ZADITOR [Suspect]
     Indication: DRY EYE
     Dosage: 2 DROPS DAILY
     Dates: start: 20070501

REACTIONS (4)
  - CONJUNCTIVAL IRRITATION [None]
  - CONJUNCTIVITIS [None]
  - DRUG INEFFECTIVE [None]
  - EYE DISCHARGE [None]
